FAERS Safety Report 11352725 (Version 1)
Quarter: 2015Q3

REPORT INFORMATION
  Report Type: Spontaneous
  Country: US (occurrence: US)
  Receive Date: 20150807
  Receipt Date: 20150807
  Transmission Date: 20151125
  Serious: No
  Sender: FDA-Public Use
  Company Number: US-JNJFOC-20150112979

PATIENT
  Age: 78 Year
  Sex: Female
  Weight: 74.84 kg

DRUGS (2)
  1. MENS ROGAINE EXTRA STRENGTH [Suspect]
     Active Substance: MINOXIDIL
     Route: 061
  2. MENS ROGAINE EXTRA STRENGTH [Suspect]
     Active Substance: MINOXIDIL
     Indication: MADAROSIS
     Dosage: DOSAGE - ABOUT A DIMES WORTH ON EACH EYEBROW
     Route: 061
     Dates: end: 20150114

REACTIONS (3)
  - Drug administered at inappropriate site [Unknown]
  - Wrong patient received medication [Unknown]
  - Product quality issue [Unknown]
